FAERS Safety Report 24097934 (Version 1)
Quarter: 2024Q3

REPORT INFORMATION
  Report Type: Report from Study
  Country: US (occurrence: None)
  Receive Date: 20240716
  Receipt Date: 20240716
  Transmission Date: 20241016
  Serious: Yes (Hospitalization)
  Sender: ASTRAZENECA
  Company Number: 2020SF44665

PATIENT
  Age: 3047 Week
  Sex: Female

DRUGS (36)
  1. FASENRA [Suspect]
     Active Substance: BENRALIZUMAB
     Route: 058
     Dates: start: 20200509
  2. ESOMEPRAZOLE MAGNESIUM [Suspect]
     Active Substance: ESOMEPRAZOLE MAGNESIUM
     Route: 048
  3. ALPRAZOLAM [Concomitant]
     Active Substance: ALPRAZOLAM
  4. AMITIZA [Concomitant]
     Active Substance: LUBIPROSTONE
  5. AMOXICILLIN\CLAVULANIC ACID [Concomitant]
     Active Substance: AMOXICILLIN\CLAVULANIC ACID
  6. ANASTROZOLE [Concomitant]
     Active Substance: ANASTROZOLE
  7. ARIPIPRAZOLE [Concomitant]
     Active Substance: ARIPIPRAZOLE
  8. ASPIRIN [Concomitant]
     Active Substance: ASPIRIN
  9. ATORVASTATIN [Concomitant]
     Active Substance: ATORVASTATIN
  10. BACLOFEN [Concomitant]
     Active Substance: BACLOFEN
  11. BUSPIRONE [Concomitant]
     Active Substance: BUSPIRONE HYDROCHLORIDE
  12. CARBIDOPA\LEVODOPA [Concomitant]
     Active Substance: CARBIDOPA\LEVODOPA
  13. CLINDAMYCIN [Concomitant]
     Active Substance: CLINDAMYCIN
  14. EZETIMIBE [Concomitant]
     Active Substance: EZETIMIBE
  15. FEBUXOSTAT [Concomitant]
     Active Substance: FEBUXOSTAT
  16. FOLIC ACID [Concomitant]
     Active Substance: FOLIC ACID
  17. ACETAMINOPHEN\HYDROCODONE BITARTRATE [Concomitant]
     Active Substance: ACETAMINOPHEN\HYDROCODONE BITARTRATE
  18. LAMOTRIGINE [Concomitant]
     Active Substance: LAMOTRIGINE
  19. LEFLUNOMIDE [Concomitant]
     Active Substance: LEFLUNOMIDE
  20. LEVETIRACETAM [Concomitant]
     Active Substance: LEVETIRACETAM
  21. LEVOFLOXACIN [Concomitant]
     Active Substance: LEVOFLOXACIN
  22. LEVOTHYROXINE [Concomitant]
     Active Substance: LEVOTHYROXINE\LEVOTHYROXINE SODIUM
  23. MONTELUKAST SODIUM [Concomitant]
     Active Substance: MONTELUKAST SODIUM
  24. NURTEC ODT [Concomitant]
     Active Substance: RIMEGEPANT SULFATE
  25. ONDANSETRON [Concomitant]
     Active Substance: ONDANSETRON
  26. PIOGLITAZONE [Concomitant]
     Active Substance: PIOGLITAZONE
  27. ROPINIROLE [Concomitant]
     Active Substance: ROPINIROLE
  28. SERTRALINE [Concomitant]
     Active Substance: SERTRALINE HYDROCHLORIDE
  29. SPIRONOLACTONE [Concomitant]
     Active Substance: SPIRONOLACTONE
  30. TELMISARTAN [Concomitant]
     Active Substance: TELMISARTAN
  31. TOPIRAMATE [Concomitant]
     Active Substance: TOPIRAMATE
  32. TRAZODONE [Concomitant]
     Active Substance: TRAZODONE HYDROCHLORIDE
  33. VALACYCLOVIR HYDROCHLORIDE [Concomitant]
     Active Substance: VALACYCLOVIR HYDROCHLORIDE
  34. VERAPAMIL [Concomitant]
     Active Substance: VERAPAMIL HYDROCHLORIDE
  35. VICTOZA [Concomitant]
     Active Substance: LIRAGLUTIDE
  36. XTAMPZA ER [Concomitant]
     Active Substance: OXYCODONE

REACTIONS (1)
  - Infection [Recovered/Resolved]

NARRATIVE: CASE EVENT DATE: 20201008
